FAERS Safety Report 4450743-9 (Version None)
Quarter: 2004Q3

REPORT INFORMATION
  Report Type: 
  Country: None (occurrence: None)
  Receive Date: 20040913
  Receipt Date: 20040913
  Transmission Date: 20050211
  Serious: Yes (Disabling)
  Sender: FDA-Public Use
  Company Number: None

PATIENT
  Age: 51 Year
  Sex: Female
  Weight: 86.1834 kg

DRUGS (2)
  1. LEXAPRO [Suspect]
     Indication: MAJOR DEPRESSION
     Dosage: 1 / DAY
     Dates: start: 20030901, end: 20040401
  2. NEURONTIN [Suspect]
     Indication: NEURALGIA
     Dosage: 2 / DAY AS NEEDED
     Dates: start: 20040201, end: 20040401

REACTIONS (6)
  - ANXIETY [None]
  - BURNING SENSATION [None]
  - DISORIENTATION [None]
  - MEDICATION ERROR [None]
  - PAIN IN EXTREMITY [None]
  - PRURITUS [None]
